FAERS Safety Report 4776808-X (Version None)
Quarter: 2005Q3

REPORT INFORMATION
  Report Type: 
  Country: None (occurrence: None)
  Receive Date: 20050923
  Receipt Date: 20050912
  Transmission Date: 20060218
  Serious: Yes (Other)
  Sender: FDA-Public Use
  Company Number: 2005AC01361

PATIENT
  Age: 21 Year
  Sex: Male

DRUGS (3)
  1. ATENOLOL [Suspect]
     Indication: HYPERTENSION
  2. PROPRANOLOL [Suspect]
     Indication: BLOOD PRESSURE INCREASED
     Dosage: OCCASSIONAL ADMINISTERED
  3. PHENOXYBENZAMINE [Suspect]
     Indication: HYPERTENSION

REACTIONS (8)
  - ASTHENIA [None]
  - CHEST PAIN [None]
  - GYNAECOMASTIA [None]
  - HYPOTENSION [None]
  - ORTHOSTATIC HYPOTENSION [None]
  - PULMONARY OEDEMA [None]
  - SYNCOPE [None]
  - TEMPERATURE REGULATION DISORDER [None]
